FAERS Safety Report 23990200 (Version 4)
Quarter: 2024Q3

REPORT INFORMATION
  Report Type: Spontaneous
  Country: US (occurrence: None)
  Receive Date: 20240619
  Receipt Date: 20240821
  Transmission Date: 20241016
  Serious: No
  Sender: ASTRAZENECA
  Company Number: 2024A138769

PATIENT
  Age: 44 Year
  Sex: Female

DRUGS (1)
  1. SYMLIN [Suspect]
     Active Substance: PRAMLINTIDE ACETATE
     Indication: Type 1 diabetes mellitus
     Dosage: 2.7ML UNKNOWN
     Route: 058
     Dates: start: 2013

REACTIONS (8)
  - Blood insulin increased [Unknown]
  - Drug ineffective [Unknown]
  - Product storage error [Unknown]
  - Device delivery system issue [Unknown]
  - Weight increased [Unknown]
  - Blood glucose increased [Unknown]
  - Lack of satiety [Unknown]
  - Extra dose administered [Unknown]
